FAERS Safety Report 9804014 (Version 2)
Quarter: 2014Q1

REPORT INFORMATION
  Report Type: Spontaneous
  Country: AR (occurrence: None)
  Receive Date: 20140103
  Receipt Date: 20140219
  Transmission Date: 20141002
  Serious: Yes (Other)
  Sender: FDA-Public Use
  Company Number: VAL_02883_2013

PATIENT
  Sex: Female

DRUGS (1)
  1. METHYLERGOMETRINE MALEATE [Suspect]
     Indication: DELIVERY
     Dosage: DF
     Route: 048
     Dates: start: 2001, end: 201312

REACTIONS (2)
  - Abortion spontaneous [None]
  - Exposure during pregnancy [None]
